FAERS Safety Report 4291716-9 (Version None)
Quarter: 2004Q1

REPORT INFORMATION
  Report Type: 
  Country: None (occurrence: None)
  Receive Date: 20040211
  Receipt Date: 20030108
  Transmission Date: 20041129
  Serious: No
  Sender: FDA-Public Use
  Company Number: US-GLAXOSMITHKLINE-A0391459A

PATIENT
  Age: 29 Year
  Sex: Female

DRUGS (3)
  1. IMITREX [Suspect]
     Indication: MIGRAINE
     Dosage: 1INJ SINGLE DOSE
     Route: 058
     Dates: start: 20030108
  2. BIRTH CONTROL [Concomitant]
  3. WELLBUTRIN SR [Concomitant]
     Route: 048

REACTIONS (4)
  - ERYTHEMA [None]
  - INJECTION SITE HAEMORRHAGE [None]
  - PAIN [None]
  - SWELLING [None]
